FAERS Safety Report 17113279 (Version 1)
Quarter: 2019Q4

REPORT INFORMATION
  Report Type: Spontaneous
  Country: DE (occurrence: DE)
  Receive Date: 20191204
  Receipt Date: 20191204
  Transmission Date: 20200122
  Serious: No
  Sender: FDA-Public Use
  Company Number: DE-LUPIN PHARMACEUTICALS INC.-2019-02379

PATIENT
  Sex: Female

DRUGS (1)
  1. MAEXENI FILMTABLETTEN [Suspect]
     Active Substance: ETHINYL ESTRADIOL\LEVONORGESTREL
     Indication: DYSMENORRHOEA
     Dosage: 1 DOSAGE FORM, QD
     Route: 048

REACTIONS (2)
  - Product use in unapproved indication [Unknown]
  - Product dose omission [Unknown]
